FAERS Safety Report 7415648 (Version 2)
Quarter: 2012Q4

REPORT INFORMATION
  Report Type: 
  Country: US (occurrence: US)
  Receive Date: 20100610
  Receipt Date: 20120905
  Transmission Date: 20130627
  Serious: Yes (Other)
  Sender: FDA-Public Use
  Company Number: US-JNJFOC-20100600858

PATIENT
  Age: 23 Year
  Sex: Female

DRUGS (1)
  1. MONONESSA [Suspect]
     Indication: CONTRACEPTION
     Route: 048

REACTIONS (7)
  - Abortion spontaneous [Unknown]
  - Pregnancy on oral contraceptive [Unknown]
  - Ovarian cyst [Not Recovered/Not Resolved]
  - Exposure during pregnancy [Unknown]
  - Pelvic pain [Not Recovered/Not Resolved]
  - Polymenorrhoea [Not Recovered/Not Resolved]
  - Menometrorrhagia [Not Recovered/Not Resolved]
